FAERS Safety Report 17733143 (Version 1)
Quarter: 2020Q2

REPORT INFORMATION
  Report Type: Spontaneous
  Country: US (occurrence: US)
  Receive Date: 20200430
  Receipt Date: 20200430
  Transmission Date: 20200714
  Serious: No
  Sender: FDA-Public Use
  Company Number: None

PATIENT
  Age: 75 Year
  Sex: Male
  Weight: 91 kg

DRUGS (2)
  1. HYDROCHLOROTHIAZIDE. [Concomitant]
     Active Substance: HYDROCHLOROTHIAZIDE
  2. OLANZAPINE. [Suspect]
     Active Substance: OLANZAPINE
     Dates: end: 20200417

REACTIONS (4)
  - Blood potassium decreased [None]
  - Incorrect dose administered [None]
  - Mucosal inflammation [None]
  - Product size issue [None]

NARRATIVE: CASE EVENT DATE: 20200427
